FAERS Safety Report 9461325 (Version 1)
Quarter: 2013Q3

REPORT INFORMATION
  Report Type: Spontaneous
  Country: US (occurrence: US)
  Receive Date: 20130816
  Receipt Date: 20130816
  Transmission Date: 20140515
  Serious: No
  Sender: FDA-Public Use
  Company Number: US-PFIZER INC-2013237083

PATIENT
  Age: 53 Year
  Sex: Female
  Weight: 78.01 kg

DRUGS (3)
  1. CHANTIX [Suspect]
     Indication: SMOKING CESSATION THERAPY
     Dosage: 0.5 MG, DAILY
     Dates: start: 201307
  2. METFORMIN [Concomitant]
     Indication: DIABETES MELLITUS
     Dosage: UNK
  3. LANTUS [Concomitant]
     Indication: DIABETES MELLITUS
     Dosage: UNK

REACTIONS (2)
  - Rash vesicular [Unknown]
  - Rash vesicular [Unknown]
